FAERS Safety Report 11855226 (Version 1)
Quarter: 2015Q4

REPORT INFORMATION
  Report Type: Spontaneous
  Country: US (occurrence: US)
  Receive Date: 20151221
  Receipt Date: 20151221
  Transmission Date: 20160305
  Serious: Yes (Life-Threatening, Other)
  Sender: FDA-Public Use
  Company Number: US-WATSON-2015-16412

PATIENT
  Age: 62 Year
  Sex: Male
  Weight: 98 kg

DRUGS (3)
  1. METHOHEXITAL [Concomitant]
     Active Substance: METHOHEXITAL
     Indication: ANAESTHESIA
     Dosage: 80 MG, SINGLE
     Route: 065
  2. SUCCINYLCHOLINE [Concomitant]
     Active Substance: SUCCINYLCHOLINE
     Indication: MUSCLE RELAXANT THERAPY
     Dosage: 70 MG, SINGLE
     Route: 065
  3. LABETALOL [Suspect]
     Active Substance: LABETALOL\LABETALOL HYDROCHLORIDE
     Indication: PROCEDURAL HYPERTENSION
     Dosage: 30 MG, SINGLE
     Route: 065

REACTIONS (1)
  - Cardiac arrest [Recovered/Resolved]
